FAERS Safety Report 11388743 (Version 1)
Quarter: 2015Q3

REPORT INFORMATION
  Report Type: Spontaneous
  Country: CH (occurrence: CH)
  Receive Date: 20150817
  Receipt Date: 20150817
  Transmission Date: 20151125
  Serious: Yes (Life-Threatening, Hospitalization)
  Sender: FDA-Public Use
  Company Number: CH-PFIZER INC-2015273257

PATIENT
  Age: 87 Year
  Sex: Female
  Weight: 60 kg

DRUGS (9)
  1. PANTOZOL [Concomitant]
     Active Substance: PANTOPRAZOLE SODIUM
     Dosage: 40 MG, DAILY
     Route: 048
  2. CELECOXIB. [Suspect]
     Active Substance: CELECOXIB
     Indication: MUSCULOSKELETAL PAIN
     Dosage: 200 MG, 1X/DAY
     Dates: start: 20150615, end: 20150622
  3. LYRICA [Concomitant]
     Active Substance: PREGABALIN
     Dosage: 100 MG, DAILY
     Route: 048
     Dates: start: 2014
  4. CELECOXIB. [Suspect]
     Active Substance: CELECOXIB
     Indication: PAIN IN EXTREMITY
  5. NEBIVOLOL. [Concomitant]
     Active Substance: NEBIVOLOL
     Indication: BLOOD PRESSURE INCREASED
     Dosage: 5 MG, DAILY
     Route: 048
  6. NOVALGIN [Suspect]
     Active Substance: METAMIZOLE SODIUM
     Indication: ORAL PAIN
     Dosage: 80 DROPS/DAY
     Route: 048
     Dates: start: 20150625, end: 20150626
  7. AMLODIPINE [Concomitant]
     Active Substance: AMLODIPINE BESYLATE
     Indication: HYPERTONIA
     Dosage: 5 MG, DAILY
     Route: 048
  8. ATORVASTATIN [Concomitant]
     Active Substance: ATORVASTATIN
     Indication: DYSLIPIDAEMIA
     Dosage: 40 MG, DAILY
     Route: 048
  9. ASPIRIN. [Concomitant]
     Active Substance: ASPIRIN
     Indication: CORONARY ARTERY DISEASE
     Dosage: 100 MG, DAILY
     Route: 048

REACTIONS (8)
  - Thrombocytopenia [Recovered/Resolved]
  - Aphthous ulcer [Recovered/Resolved]
  - Pancytopenia [Recovering/Resolving]
  - Herpes simplex [Recovered/Resolved]
  - Candida infection [Recovered/Resolved]
  - Anaemia [Unknown]
  - Neutropenia [Recovered/Resolved]
  - Mouth haemorrhage [Recovered/Resolved]

NARRATIVE: CASE EVENT DATE: 20150619
